FAERS Safety Report 23984179 (Version 1)
Quarter: 2024Q2

REPORT INFORMATION
  Report Type: Spontaneous
  Country: NL (occurrence: NL)
  Receive Date: 20240618
  Receipt Date: 20240618
  Transmission Date: 20240716
  Serious: Yes (Other)
  Sender: FDA-Public Use
  Company Number: NL-LRB-00968261

PATIENT
  Age: 63 Year
  Sex: Male
  Weight: 87.8 kg

DRUGS (12)
  1. SPIRONOLACTONE [Suspect]
     Active Substance: SPIRONOLACTONE
     Indication: Hypertension
     Dosage: 125 MILLIGRAM, ONCE A DAY (125MG ONCE A DAY)
     Route: 065
     Dates: start: 20221214, end: 20240409
  2. FUROSEMIDE [Concomitant]
     Active Substance: FUROSEMIDE
     Indication: Product used for unknown indication
     Dosage: 40 MILLIGRAM (TABLET, 40 MG (MILLIGRAM)
     Route: 065
  3. LEVETIRACETAM [Concomitant]
     Active Substance: LEVETIRACETAM
     Indication: Product used for unknown indication
     Dosage: 500 MILLIGRAM (FILMOMHULDE TABLET, 500 MG (MILLIGRAM)
     Route: 065
  4. RIFAXIMIN [Concomitant]
     Active Substance: RIFAXIMIN
     Indication: Product used for unknown indication
     Dosage: 550 MILLIGRAM (TABLET, 550 MG (MILLIGRAM)
     Route: 065
  5. LACTULOSE [Concomitant]
     Active Substance: LACTULOSE
     Indication: Product used for unknown indication
     Dosage: 250 MILLIGRAM PER GRAM (ENEMA, 250 MG/G (MILLIGRAM PER GRAM))
     Route: 065
  6. INSULIN GLARGINE [Concomitant]
     Active Substance: INSULIN GLARGINE
     Indication: Product used for unknown indication
     Dosage: 100 UNITS/MILLILITER (INJECTION FLUID, 100 UNITS/ML (UNITS PER MILLILITER)
     Route: 065
  7. LACTITOL [Concomitant]
     Active Substance: LACTITOL
     Indication: Product used for unknown indication
     Dosage: 10 GRAM (SACHET (POWDER), 10 G (GRAM))
     Route: 065
  8. DALTEPARIN [Concomitant]
     Active Substance: DALTEPARIN
     Indication: Product used for unknown indication
     Dosage: 12500 UNITS/MILLILITER (INJECTION FLUID, 12,500 IU/ML (UNITS PER MILLILITER)
     Route: 065
  9. CARVEDILOL [Concomitant]
     Active Substance: CARVEDILOL
     Indication: Product used for unknown indication
     Dosage: 12.5 MILLIGRAM (TABLET, 12,5 MG (MILLIGRAM)
     Route: 065
  10. ESOMEPRAZOLE [Concomitant]
     Active Substance: ESOMEPRAZOLE
     Indication: Product used for unknown indication
     Dosage: 20 MILLIGRAM (GASTRO-RESISTANT TABLET, 20 MG (MILLIGRAM)
     Route: 065
  11. LACTULOSE [Concomitant]
     Active Substance: LACTULOSE
     Indication: Product used for unknown indication
     Dosage: 670 MILLIGRAM PER MILLILITRE (SYRUP, 670 MG/ML (MILLIGRAMS PER MILLILITER)
     Route: 065
  12. INSULIN ASPART [Concomitant]
     Active Substance: INSULIN ASPART
     Indication: Product used for unknown indication
     Dosage: 100 UNITS/MILLILITER (INJECTION FLUID, 100 UNITS/ML (UNITS PER MILLILITER)
     Route: 065

REACTIONS (1)
  - Hypokalaemia [Recovered/Resolved]
